FAERS Safety Report 7683781-3 (Version None)
Quarter: 2011Q3

REPORT INFORMATION
  Report Type: 
  Country: None (occurrence: None)
  Receive Date: 20110815
  Receipt Date: 20110805
  Transmission Date: 20111222
  Serious: Yes (Other)
  Sender: FDA-Public Use
  Company Number: US-ASTRAZENECA-2011SE47182

PATIENT
  Age: 67 Year
  Sex: Female

DRUGS (6)
  1. OMEPRAZOLE [Interacting]
     Route: 048
  2. ALPRAZOLAM [Interacting]
     Route: 048
     Dates: start: 20110201
  3. EMSAM [Suspect]
     Indication: DEPRESSION
     Route: 062
  4. OMEPRAZOLE [Interacting]
     Indication: GASTROOESOPHAGEAL REFLUX DISEASE
     Route: 048
     Dates: start: 20040101
  5. ALPRAZOLAM [Interacting]
     Indication: ANXIETY
     Route: 048
     Dates: start: 20101101
  6. ALPRAZOLAM [Interacting]
     Route: 048

REACTIONS (14)
  - ANXIETY [None]
  - DEPRESSED MOOD [None]
  - WEIGHT INCREASED [None]
  - COORDINATION ABNORMAL [None]
  - FATIGUE [None]
  - WITHDRAWAL SYNDROME [None]
  - SEDATION [None]
  - FEELING ABNORMAL [None]
  - DRUG INEFFECTIVE [None]
  - IRRITABILITY [None]
  - DRUG INTERACTION [None]
  - SOMNOLENCE [None]
  - CRYING [None]
  - DEPRESSION [None]
